FAERS Safety Report 25864799 (Version 1)
Quarter: 2025Q3

REPORT INFORMATION
  Report Type: Spontaneous
  Country: US (occurrence: None)
  Receive Date: 20250930
  Receipt Date: 20250930
  Transmission Date: 20251020
  Serious: No
  Sender: FDA-CTU
  Company Number: None

PATIENT
  Age: 39 Year
  Sex: Female
  Weight: 121.5 kg

DRUGS (7)
  1. CETIRIZINE HYDROCHLORIDE [Suspect]
     Active Substance: CETIRIZINE HYDROCHLORIDE
     Indication: Hypersensitivity
     Dosage: 1 TABLET DAILY ORAL
     Route: 048
     Dates: start: 20250301, end: 20250923
  2. Birth control Balziva [Concomitant]
  3. vitamin d2 [ [Concomitant]
  4. COENZYME Q10 [Concomitant]
     Active Substance: DIETARY SUPPLEMENT\UBIDECARENONE
  5. OMEGA 3 [Concomitant]
     Active Substance: CAPSAICIN
  6. levothryroxine 112mcg [Concomitant]
  7. FOLIC ACID [Concomitant]
     Active Substance: FOLIC ACID

REACTIONS (1)
  - Pruritus [None]

NARRATIVE: CASE EVENT DATE: 20250923
